FAERS Safety Report 13285094 (Version 1)
Quarter: 2017Q1

REPORT INFORMATION
  Report Type: Spontaneous
  Country: US (occurrence: US)
  Receive Date: 20170301
  Receipt Date: 20170301
  Transmission Date: 20170428
  Serious: Yes (Disabling)
  Sender: FDA-Public Use
  Company Number: None

PATIENT
  Age: 1 Year
  Sex: Female
  Weight: 38.25 kg

DRUGS (9)
  1. CARNATION INSTANT BREAKFAST [Concomitant]
  2. IRON [Concomitant]
     Active Substance: IRON
  3. ZOLOFT [Concomitant]
     Active Substance: SERTRALINE HYDROCHLORIDE
  4. NASAL SPRAY [Concomitant]
     Active Substance: UNSPECIFIED INGREDIENT
  5. CETIRIZINE HYDROCHLORIDE. [Concomitant]
     Active Substance: CETIRIZINE HYDROCHLORIDE
  6. CULTURELLE PROBIOTIC PACKETS FOR KIDS [Concomitant]
  7. POLY-VI-SOL [Concomitant]
     Active Substance: VITAMINS
  8. MIRALAX [Suspect]
     Active Substance: POLYETHYLENE GLYCOL 3350
     Indication: CONSTIPATION
     Dosage: ORAL 1 1/2 CAPFUL?
     Route: 048
     Dates: start: 20110818, end: 20140818
  9. HYDROXYZINE [Concomitant]
     Active Substance: HYDROXYZINE HYDROCHLORIDE

REACTIONS (2)
  - Anxiety [None]
  - Feeding disorder [None]

NARRATIVE: CASE EVENT DATE: 20110818
